FAERS Safety Report 4988711-0 (Version None)
Quarter: 2006Q2

REPORT INFORMATION
  Report Type: 
  Country: None (occurrence: None)
  Receive Date: 20060426
  Receipt Date: 20060410
  Transmission Date: 20061013
  Serious: Yes (Death)
  Sender: FDA-Public Use
  Company Number: DSA_28034_2006

PATIENT
  Age: 69 Year
  Sex: Male

DRUGS (6)
  1. ENALAPRIL MALEATE [Suspect]
     Indication: CARDIOMYOPATHY
     Dosage: 5 MG Q DY PO
     Route: 048
     Dates: start: 20021001, end: 20031222
  2. SIMVASTATIN [Suspect]
     Indication: HYPERLIPIDAEMIA
     Dosage: 10 MG Q DAY PO
     Route: 048
     Dates: start: 20030123, end: 20030721
  3. ADIRO [Suspect]
     Indication: CARDIOMYOPATHY
     Dosage: 100 MG Q DAY PO
     Route: 048
     Dates: start: 20021001, end: 20031222
  4. ATENOLOL [Suspect]
     Indication: CARDIOMYOPATHY
     Dosage: 50 MG Q DAY PO
     Route: 048
     Dates: start: 20021001, end: 20040112
  5. ZINNAT [Suspect]
     Indication: INFECTION
     Dosage: DF PO
     Route: 048
     Dates: start: 20030101, end: 20031125
  6. ZINNAT [Suspect]
     Indication: INFECTION PARASITIC
     Dosage: DF PO
     Route: 048
     Dates: start: 20030101, end: 20031125

REACTIONS (4)
  - HEPATITIS [None]
  - HYPERLIPIDAEMIA [None]
  - INFECTION [None]
  - INFECTION PARASITIC [None]
